FAERS Safety Report 4430118-9 (Version None)
Quarter: 2004Q3

REPORT INFORMATION
  Report Type: 
  Country: None (occurrence: None)
  Receive Date: 20040819
  Receipt Date: 20040819
  Transmission Date: 20050211
  Serious: No
  Sender: FDA-Public Use
  Company Number: None

PATIENT
  Age: 80 Year
  Sex: Male
  Weight: 67 kg

DRUGS (1)
  1. PAMIDRONATE DISODIUM [Suspect]
     Indication: PROSTATE CANCER METASTATIC
     Dosage: 90 MG TWICE INTRAVENOUS
     Route: 042
     Dates: start: 20040730, end: 20040730

REACTIONS (1)
  - MEDICATION ERROR [None]
